FAERS Safety Report 7270794-9 (Version None)
Quarter: 2011Q1

REPORT INFORMATION
  Report Type: 
  Country: None (occurrence: None)
  Receive Date: 20110202
  Receipt Date: 20110125
  Transmission Date: 20110831
  Serious: Yes (Hospitalization, Other)
  Sender: FDA-Public Use
  Company Number: US-ASTRAZENECA-2011SE04581

PATIENT
  Age: 54 Year
  Sex: Female

DRUGS (2)
  1. NEXIUM [Suspect]
     Route: 048
  2. PRILOSEC [Suspect]
     Route: 048

REACTIONS (10)
  - NAUSEA [None]
  - NEOPLASM MALIGNANT [None]
  - LYMPHADENECTOMY [None]
  - MASTECTOMY [None]
  - FEELING ABNORMAL [None]
  - INFLAMMATION [None]
  - ULCER [None]
  - DRUG INEFFECTIVE [None]
  - OESOPHAGITIS [None]
  - MALAISE [None]
